FAERS Safety Report 8589887-9 (Version None)
Quarter: 2012Q3

REPORT INFORMATION
  Report Type: 
  Country: None (occurrence: None)
  Receive Date: 20120813
  Receipt Date: 20120807
  Transmission Date: 20120928
  Serious: Yes (Hospitalization, Other)
  Sender: FDA-Public Use
  Company Number: PHEH2012US015531

PATIENT
  Sex: Male

DRUGS (1)
  1. AFINITOR [Suspect]
     Indication: CARCINOID SYNDROME
     Dosage: 5 MG, QD
     Route: 048

REACTIONS (7)
  - CEREBRAL HAEMORRHAGE [None]
  - SWELLING [None]
  - SPEECH DISORDER [None]
  - THROMBOSIS [None]
  - PULMONARY THROMBOSIS [None]
  - UPPER AIRWAY OBSTRUCTION [None]
  - ABDOMINAL DISTENSION [None]
